FAERS Safety Report 4474394-5 (Version None)
Quarter: 2004Q4

REPORT INFORMATION
  Report Type: 
  Country: None (occurrence: None)
  Receive Date: 20041014
  Receipt Date: 20041007
  Transmission Date: 20050328
  Serious: Yes (Life-Threatening, Hospitalization, Disabling, Congenital Anomaly)
  Sender: FDA-Public Use
  Company Number: US-MERCK-0410USA01153

PATIENT
  Age: 75 Year
  Sex: Female

DRUGS (12)
  1. FOSAMAX [Concomitant]
     Route: 065
  2. ECOTRIN [Concomitant]
     Route: 065
  3. CALCIUM (UNSPECIFIED) [Concomitant]
     Route: 065
  4. ZYRTEC-D 12 HOUR [Concomitant]
     Route: 065
  5. LEXAPRO [Concomitant]
     Route: 065
  6. NEXIUM [Concomitant]
     Route: 065
  7. ZETIA [Concomitant]
     Route: 065
  8. SYNTHROID [Concomitant]
     Route: 065
  9. COZAAR [Concomitant]
     Route: 065
  10. VIOXX [Suspect]
     Indication: ARTHRALGIA
     Route: 048
     Dates: end: 20041001
  11. VIOXX [Suspect]
     Route: 048
     Dates: end: 20041001
  12. ZOCOR [Concomitant]
     Route: 065

REACTIONS (1)
  - MYOCARDIAL INFARCTION [None]
